FAERS Safety Report 17749649 (Version 1)
Quarter: 2020Q2

REPORT INFORMATION
  Report Type: Spontaneous
  Country: PL (occurrence: PL)
  Receive Date: 20200506
  Receipt Date: 20200506
  Transmission Date: 20200714
  Serious: Yes (Other)
  Sender: FDA-Public Use
  Company Number: PL-AMGEN-POLSP2020072170

PATIENT
  Age: 24 Year
  Sex: Male
  Weight: 97 kg

DRUGS (1)
  1. ENBREL [Suspect]
     Active Substance: ETANERCEPT
     Indication: ANKYLOSING SPONDYLITIS
     Dosage: UNK, WEEKLY (ONE TIME PER WEEK)
     Route: 058
     Dates: start: 20160531, end: 20180403

REACTIONS (2)
  - Skin lesion [Recovering/Resolving]
  - Uveitis [Recovering/Resolving]
